FAERS Safety Report 12736506 (Version 1)
Quarter: 2016Q3

REPORT INFORMATION
  Report Type: Spontaneous
  Country: US (occurrence: US)
  Receive Date: 20160913
  Receipt Date: 20160913
  Transmission Date: 20161109
  Serious: No
  Sender: FDA-Public Use
  Company Number: US-TEVA-672495USA

PATIENT
  Age: 63 Year
  Sex: Female
  Weight: 65.83 kg

DRUGS (2)
  1. MIMVEY [Suspect]
     Active Substance: ESTRADIOL\NORETHINDRONE ACETATE
     Indication: MENOPAUSE
  2. MIMVEY [Suspect]
     Active Substance: ESTRADIOL\NORETHINDRONE ACETATE
     Indication: HORMONE REPLACEMENT THERAPY
     Dosage: 1 MG/0.5MG
     Dates: start: 20160602

REACTIONS (3)
  - Weight increased [Unknown]
  - Emotional disorder [Unknown]
  - Alopecia [Unknown]

NARRATIVE: CASE EVENT DATE: 201606
